FAERS Safety Report 4636776-8 (Version None)
Quarter: 2005Q2

REPORT INFORMATION
  Report Type: 
  Country: None (occurrence: None)
  Receive Date: 20050414
  Receipt Date: 20050331
  Transmission Date: 20051028
  Serious: Yes (Other)
  Sender: FDA-Public Use
  Company Number: 2005BI005075

PATIENT
  Age: 25 Year
  Sex: Male
  Weight: 72 kg

DRUGS (6)
  1. ZEVALIN [Suspect]
     Dosage: IX; IV; IX; IV; 28.4 MCI; IX; IV
     Route: 042
     Dates: start: 20040901, end: 20040901
  2. ZEVALIN [Suspect]
     Dosage: IX; IV; IX; IV; 28.4 MCI; IX; IV
     Route: 042
     Dates: start: 20040930, end: 20040930
  3. ZEVALIN [Suspect]
     Dosage: IX; IV; IX; IV; 28.4 MCI; IX; IV
     Route: 042
     Dates: start: 20040930, end: 20040930
  4. . [Concomitant]
  5. . [Concomitant]
  6. RITUXAN [Concomitant]

REACTIONS (9)
  - ANAEMIA [None]
  - ARTHRALGIA [None]
  - ARTHRITIS REACTIVE [None]
  - CHILLS [None]
  - JOINT EFFUSION [None]
  - PYREXIA [None]
  - THROMBOCYTOPENIA [None]
  - THROMBOPHLEBITIS [None]
  - VASCULITIS [None]
